FAERS Safety Report 11330545 (Version 1)
Quarter: 2015Q3

REPORT INFORMATION
  Report Type: Spontaneous
  Country: US (occurrence: US)
  Receive Date: 20150803
  Receipt Date: 20150803
  Transmission Date: 20151125
  Serious: No
  Sender: FDA-Public Use
  Company Number: US-TAKEDA-2015TUS003792

PATIENT
  Sex: Female
  Weight: 104.31 kg

DRUGS (4)
  1. COLCRYS [Suspect]
     Active Substance: COLCHICINE
     Indication: GOUT
     Dosage: 0.6 MG, QD
     Route: 048
     Dates: start: 20150226, end: 20150304
  2. COLCRYS [Suspect]
     Active Substance: COLCHICINE
     Dosage: 0.6 MG, QD
     Route: 048
     Dates: start: 20150311, end: 20150315
  3. BLOOD PRESSURE PILLS [Concomitant]
     Active Substance: UNSPECIFIED INGREDIENT
  4. NATROPATHIC MEDS FOR PAIN [Concomitant]
     Dosage: UNK

REACTIONS (3)
  - Gastrointestinal sounds abnormal [Recovering/Resolving]
  - Flatulence [Recovering/Resolving]
  - Diarrhoea [Recovering/Resolving]
